FAERS Safety Report 13023405 (Version 1)
Quarter: 2016Q4

REPORT INFORMATION
  Report Type: Spontaneous
  Country: US (occurrence: US)
  Receive Date: 20161211
  Receipt Date: 20161211
  Transmission Date: 20170207
  Serious: No
  Sender: FDA-Public Use
  Company Number: None

PATIENT
  Age: 78 Year
  Sex: Female
  Weight: 78.75 kg

DRUGS (10)
  1. WELCHOL [Concomitant]
     Active Substance: COLESEVELAM HYDROCHLORIDE
  2. CRANBERRY. [Concomitant]
     Active Substance: CRANBERRY
  3. CENTRUM [Concomitant]
     Active Substance: VITAMINS
  4. ARIMIDEX [Concomitant]
     Active Substance: ANASTROZOLE
  5. CALCIUM [Concomitant]
     Active Substance: CALCIUM
  6. FISHOIL [Concomitant]
  7. SYNTHROID [Concomitant]
     Active Substance: LEVOTHYROXINE SODIUM
  8. BABY ASPIRIN [Concomitant]
     Active Substance: ASPIRIN
  9. MACROBID [Suspect]
     Active Substance: NITROFURANTOIN\NITROFURANTOIN MONOHYDRATE
     Indication: URINARY TRACT INFECTION
     Dosage: ?          QUANTITY:10 CAPSULE(S);?
     Route: 048
     Dates: start: 20161205, end: 20161211
  10. MAGNESIUM [Concomitant]
     Active Substance: MAGNESIUM

REACTIONS (9)
  - Dizziness [None]
  - Muscular weakness [None]
  - Hepatic enzyme increased [None]
  - Fatigue [None]
  - Nausea [None]
  - Paraesthesia [None]
  - Dyspnoea [None]
  - Palpitations [None]
  - Headache [None]

NARRATIVE: CASE EVENT DATE: 20161205
